FAERS Safety Report 12885302 (Version 2)
Quarter: 2016Q4

REPORT INFORMATION
  Report Type: Spontaneous
  Country: HR (occurrence: HR)
  Receive Date: 20161026
  Receipt Date: 20161123
  Transmission Date: 20170207
  Serious: Yes (Hospitalization)
  Sender: FDA-Public Use
  Company Number: HR-ELI_LILLY_AND_COMPANY-HR201601010233

PATIENT
  Age: 61 Year
  Sex: Male

DRUGS (1)
  1. ZYPADHERA [Suspect]
     Active Substance: OLANZAPINE PAMOATE
     Indication: SCHIZOPHRENIA
     Dosage: 300 MG, UNKNOWN
     Route: 030
     Dates: start: 20151130

REACTIONS (9)
  - Somnolence [Unknown]
  - Confusional state [Unknown]
  - Heart rate increased [Unknown]
  - Blood pressure increased [Unknown]
  - Communication disorder [Unknown]
  - Hypotension [Unknown]
  - Dysarthria [Unknown]
  - Oxygen saturation decreased [Unknown]
  - Tachycardia [Unknown]

NARRATIVE: CASE EVENT DATE: 20160128
